FAERS Safety Report 19400650 (Version 3)
Quarter: 2021Q3

REPORT INFORMATION
  Report Type: Spontaneous
  Country: US (occurrence: US)
  Receive Date: 20210610
  Receipt Date: 20210709
  Transmission Date: 20211014
  Serious: Yes (Hospitalization)
  Sender: FDA-Public Use
  Company Number: US-CELGENEUS-USA-20210600983

PATIENT
  Sex: Female
  Weight: 86.26 kg

DRUGS (1)
  1. REVLIMID [Suspect]
     Active Substance: LENALIDOMIDE
     Indication: PLASMA CELL MYELOMA
     Dosage: 10 MILLIGRAM
     Route: 048
     Dates: start: 20210508

REACTIONS (8)
  - Renal disorder [Unknown]
  - Peripheral swelling [Unknown]
  - Dizziness [Recovered/Resolved]
  - Blood calcium decreased [Unknown]
  - Rash [Recovered/Resolved]
  - Blood phosphorus decreased [Unknown]
  - Swelling face [Recovered/Resolved]
  - Blood magnesium decreased [Unknown]

NARRATIVE: CASE EVENT DATE: 2021
